FAERS Safety Report 5765112-9 (Version None)
Quarter: 2008Q2

REPORT INFORMATION
  Report Type: 
  Country: None (occurrence: None)
  Receive Date: 20080611
  Receipt Date: 20080602
  Transmission Date: 20081010
  Serious: Yes (Other)
  Sender: FDA-Public Use
  Company Number: BR-JNJFOC-20080601424

PATIENT
  Age: 22 Month
  Sex: Female
  Weight: 11 kg

DRUGS (1)
  1. HALDOL [Suspect]
     Indication: ACCIDENTAL EXPOSURE
     Dosage: UNKNOWN AMOUNT
     Route: 048

REACTIONS (3)
  - ACCIDENTAL EXPOSURE [None]
  - SALIVARY HYPERSECRETION [None]
  - SOMNOLENCE [None]
